FAERS Safety Report 23106024 (Version 1)
Quarter: 2023Q4

REPORT INFORMATION
  Report Type: Spontaneous
  Country: US (occurrence: None)
  Receive Date: 20231025
  Receipt Date: 20231025
  Transmission Date: 20240110
  Serious: Yes (Other)
  Sender: FDA-Public Use
  Company Number: US-ENDO-CASE-0034473

PATIENT
  Sex: Male

DRUGS (7)
  1. PERCOCET [Suspect]
     Active Substance: ACETAMINOPHEN\OXYCODONE HYDROCHLORIDE
  2. VICODIN [Suspect]
     Active Substance: ACETAMINOPHEN\HYDROCODONE BITARTRATE
  3. MORPHINE SULFATE [Suspect]
     Active Substance: MORPHINE SULFATE
  4. FENTANYL CITRATE [Suspect]
     Active Substance: FENTANYL CITRATE
  5. MORPHINE [Suspect]
     Active Substance: MORPHINE
  6. ABSTRAL [Suspect]
     Active Substance: FENTANYL CITRATE
  7. DEPODUR [Suspect]
     Active Substance: MORPHINE SULFATE

REACTIONS (2)
  - Overdose [Unknown]
  - Dependence [Unknown]
